FAERS Safety Report 5138614-6 (Version None)
Quarter: 2006Q4

REPORT INFORMATION
  Report Type: 
  Country: None (occurrence: None)
  Receive Date: 20061030
  Receipt Date: 20060818
  Transmission Date: 20070319
  Serious: Yes (Hospitalization)
  Sender: FDA-Public Use
  Company Number: J200603087

PATIENT
  Age: 12 Year
  Sex: Male

DRUGS (5)
  1. SAWACILLIN [Suspect]
     Indication: STREPTOCOCCAL INFECTION
     Dosage: 1000MG TWICE PER DAY
     Route: 048
     Dates: start: 20060803, end: 20060811
  2. BANAN [Concomitant]
     Indication: STREPTOCOCCAL INFECTION
     Dosage: 100MG THREE TIMES PER DAY
     Route: 048
     Dates: start: 20060726, end: 20060730
  3. DASEN [Concomitant]
     Indication: STREPTOCOCCAL INFECTION
     Dosage: 10MG THREE TIMES PER DAY
     Route: 048
     Dates: start: 20060726, end: 20060730
  4. ROCEPHIN [Concomitant]
     Indication: STREPTOCOCCAL INFECTION
     Dosage: 1G PER DAY
     Route: 042
     Dates: start: 20060803, end: 20060803
  5. METHYLPREDNISOLONE SODIUM SUCCINATE [Concomitant]
     Route: 042

REACTIONS (9)
  - ERYTHEMA [None]
  - INSOMNIA [None]
  - PRURIGO [None]
  - PRURITUS [None]
  - RASH [None]
  - RASH PAPULAR [None]
  - SOMNOLENCE [None]
  - STREPTOCOCCAL INFECTION [None]
  - URTICARIA [None]
